FAERS Safety Report 13313080 (Version 3)
Quarter: 2017Q2

REPORT INFORMATION
  Report Type: Report from Study
  Country: US (occurrence: DO)
  Receive Date: 20170309
  Receipt Date: 20170413
  Transmission Date: 20170830
  Serious: Yes (Death, Hospitalization)
  Sender: FDA-Public Use
  Company Number: US-SUNOVION-2017SUN001041

PATIENT
  Age: 67 Year
  Sex: Male

DRUGS (1)
  1. INDACATEROL AND GLYCOPYRROLATE [Suspect]
     Active Substance: GLYCOPYRROLATE\INDACATEROL MALEATE
     Indication: LUNG DISORDER
     Dosage: UNK; 0.11/0.05 MG
     Route: 055

REACTIONS (4)
  - Respiratory arrest [Fatal]
  - Sepsis [Unknown]
  - Product use issue [Unknown]
  - Infection [Unknown]

NARRATIVE: CASE EVENT DATE: 20161021
